FAERS Safety Report 9201438 (Version 2)
Quarter: 2014Q2

REPORT INFORMATION
  Report Type: Report from Study
  Country: AU (occurrence: AU)
  Receive Date: 20130401
  Receipt Date: 20140408
  Transmission Date: 20141212
  Serious: Yes (Other)
  Sender: FDA-Public Use
  Company Number: PHHY2013AU030294

PATIENT
  Sex: Female

DRUGS (5)
  1. ACLASTA [Suspect]
     Dosage: 5 MG PER 100 ML
     Route: 042
     Dates: start: 20090323
  2. ACLASTA [Suspect]
     Dosage: 5 MG PER 100 ML
     Route: 042
     Dates: start: 20100309
  3. ACLASTA [Suspect]
     Dosage: 5 MG PER 100 ML
     Route: 042
     Dates: start: 20110311
  4. ACLASTA [Suspect]
     Dosage: 5 MG PER 100 ML
     Route: 042
     Dates: start: 20120308
  5. ACLASTA [Suspect]
     Dosage: 5 MG PER 100 ML
     Route: 042
     Dates: start: 20130328

REACTIONS (4)
  - Red blood cells CSF positive [Not Recovered/Not Resolved]
  - Intervertebral disc compression [Recovering/Resolving]
  - Dysstasia [Recovering/Resolving]
  - Back pain [Not Recovered/Not Resolved]
